FAERS Safety Report 4512003-7 (Version None)
Quarter: 2004Q4

REPORT INFORMATION
  Report Type: 
  Country: None (occurrence: None)
  Receive Date: 20041129
  Receipt Date: 20040607
  Transmission Date: 20050328
  Serious: Yes (Disabling)
  Sender: FDA-Public Use
  Company Number: US-BRISTOL-MYERS SQUIBB COMPANY-12610788

PATIENT
  Age: 38 Year
  Sex: Male

DRUGS (3)
  1. SUSTIVA [Suspect]
     Indication: HIV INFECTION
     Route: 048
     Dates: start: 20040518, end: 20040601
  2. EMTRIVA [Concomitant]
  3. VIREAD [Concomitant]

REACTIONS (1)
  - RASH PRURITIC [None]
